FAERS Safety Report 17425436 (Version 1)
Quarter: 2020Q1

REPORT INFORMATION
  Report Type: Spontaneous
  Country: CA (occurrence: CA)
  Receive Date: 20200217
  Receipt Date: 20200217
  Transmission Date: 20200409
  Serious: Yes (Other)
  Sender: FDA-Public Use
  Company Number: CA-NOVOPROD-711956

PATIENT
  Age: 64 Year
  Sex: Female

DRUGS (1)
  1. SAXENDA [Suspect]
     Active Substance: LIRAGLUTIDE
     Indication: PRODUCT USED FOR UNKNOWN INDICATION
     Dosage: DOCTOR PRESCRIBED 3 MG SAXENDA AND  PATIENT WAS ASKED TO GO BY 36 CLICKS
     Route: 065
     Dates: start: 20200117

REACTIONS (4)
  - Seizure [Recovering/Resolving]
  - Vomiting [Recovering/Resolving]
  - Off label use [Unknown]
  - Abdominal pain upper [Recovering/Resolving]

NARRATIVE: CASE EVENT DATE: 20200117
